FAERS Safety Report 14649092 (Version 1)
Quarter: 2018Q1

REPORT INFORMATION
  Report Type: Spontaneous
  Country: ES (occurrence: ES)
  Receive Date: 20180316
  Receipt Date: 20180316
  Transmission Date: 20180509
  Serious: Yes (Other)
  Sender: FDA-Public Use
  Company Number: ES-PFIZER INC-2018103664

PATIENT
  Age: 62 Year
  Sex: Female

DRUGS (3)
  1. PIPERACILLIN/TAZOBACTAM [Suspect]
     Active Substance: PIPERACILLIN SODIUM\TAZOBACTAM SODIUM
     Indication: SEPTIC SHOCK
     Dosage: 1 DF, 3X/DAY
     Route: 042
     Dates: start: 20171118, end: 20171124
  2. MANIDIPINA [Concomitant]
     Indication: HYPERTENSION
     Dosage: 10 MG, SINGLE
     Route: 048
     Dates: start: 20171118, end: 20171118
  3. CLORPROMAZINA /00011902/ [Concomitant]
     Active Substance: CHLORPROMAZINE HYDROCHLORIDE
     Indication: NAUSEA
     Dosage: UNK
     Route: 042
     Dates: start: 20171118, end: 20171118

REACTIONS (1)
  - Generalised erythema [Recovering/Resolving]

NARRATIVE: CASE EVENT DATE: 20171121
